FAERS Safety Report 18117609 (Version 1)
Quarter: 2020Q3

REPORT INFORMATION
  Report Type: Spontaneous
  Country: US (occurrence: US)
  Receive Date: 20200805
  Receipt Date: 20200805
  Transmission Date: 20201103
  Serious: Yes (Other)
  Sender: FDA-Public Use
  Company Number: None

PATIENT
  Age: 66 Year
  Sex: Female
  Weight: 51.3 kg

DRUGS (15)
  1. DICYCLOMINE [Concomitant]
     Active Substance: DICYCLOMINE HYDROCHLORIDE
  2. FISH OIL [Concomitant]
     Active Substance: FISH OIL
  3. BETA CAROTENE. [Concomitant]
     Active Substance: BETA CAROTENE
  4. AMLODIPINE [Concomitant]
     Active Substance: AMLODIPINE BESYLATE
  5. MULTI VITAMINS [Concomitant]
     Active Substance: VITAMINS
  6. CYTRA K SOLUTION [Concomitant]
  7. SACCHAROMYCES BOULARDII [Concomitant]
     Active Substance: SACCHAROMYCES CEREVISIAE
  8. LISINOPRIL. [Concomitant]
     Active Substance: LISINOPRIL
  9. VITAMIN D3 [Concomitant]
     Active Substance: CHOLECALCIFEROL
  10. ASA [Concomitant]
     Active Substance: ASPIRIN
  11. VADADUSTAT. [Concomitant]
     Active Substance: VADADUSTAT
  12. E [Concomitant]
  13. BREO?ELLIPTA INHALER [Concomitant]
  14. ALBUTEROL INHALER [Concomitant]
     Active Substance: ALBUTEROL
  15. CYTRA?K [Suspect]
     Active Substance: CITRIC ACID MONOHYDRATE\POTASSIUM CITRATE
     Indication: RENAL LITHIASIS PROPHYLAXIS
     Dosage: ?          QUANTITY:32 OUNCE(S);?
     Route: 048
     Dates: start: 20200630, end: 20200801

REACTIONS (4)
  - Palpitations [None]
  - Dizziness [None]
  - Dyspnoea [None]
  - Loss of consciousness [None]

NARRATIVE: CASE EVENT DATE: 20200630
